FAERS Safety Report 9802821 (Version 4)
Quarter: 2014Q1

REPORT INFORMATION
  Report Type: Spontaneous
  Country: US (occurrence: US)
  Receive Date: 20140108
  Receipt Date: 20140313
  Transmission Date: 20141002
  Serious: Yes (Hospitalization)
  Sender: FDA-Public Use
  Company Number: US-ROCHE-1329252

PATIENT
  Age: 67 Year
  Sex: Female

DRUGS (20)
  1. RITUXAN [Suspect]
     Indication: RHEUMATOID ARTHRITIS
     Dosage: 2 WEEKS APART AND THEN 6 MONTHS LATER 2 WEEKS APART
     Route: 042
     Dates: end: 20130701
  2. RITUXAN [Suspect]
     Route: 042
     Dates: end: 2014
  3. METHOTREXATE [Concomitant]
     Indication: RHEUMATOID ARTHRITIS
     Dosage: 7 ONCE A WEEK
     Route: 065
  4. GABAPENTIN [Concomitant]
     Indication: NEUROPATHY PERIPHERAL
     Route: 065
  5. FOLIC ACID [Concomitant]
     Dosage: EVERYDAY
     Route: 065
  6. SIMVASTATIN [Concomitant]
     Dosage: HS
     Route: 065
  7. LASIX [Concomitant]
     Indication: FLUID RETENTION
     Dosage: OD
     Route: 065
  8. PANTOPRAZOLE [Concomitant]
     Indication: GASTROOESOPHAGEAL REFLUX DISEASE
     Route: 065
  9. PREDNISONE [Concomitant]
     Indication: GASTROOESOPHAGEAL REFLUX DISEASE
     Route: 065
  10. ALBUTEROL [Concomitant]
     Route: 048
  11. SINGULAIR [Concomitant]
     Route: 065
  12. PERFOROMIST [Concomitant]
     Route: 065
  13. PULMICORT NEBULIZER [Concomitant]
     Route: 065
  14. IPRATROPIUM BROMIDE NEBULIZER [Concomitant]
     Route: 065
  15. ADVAIR [Concomitant]
     Route: 065
  16. QVAR [Concomitant]
     Route: 065
  17. COUMADIN [Concomitant]
  18. JANUVIA [Concomitant]
  19. ZANTAC [Concomitant]
     Route: 065
  20. RANITIDINE [Concomitant]
     Dosage: HS
     Route: 065

REACTIONS (19)
  - Pulmonary embolism [Recovered/Resolved]
  - Asthma [Not Recovered/Not Resolved]
  - Bronchospasm [Not Recovered/Not Resolved]
  - Bronchitis [Unknown]
  - Respiratory distress [Recovered/Resolved]
  - Wheezing [Recovered/Resolved]
  - Dyspnoea [Recovered/Resolved]
  - Pulmonary eosinophilia [Not Recovered/Not Resolved]
  - Respiratory disorder [Unknown]
  - Blood glucose increased [Not Recovered/Not Resolved]
  - Tongue ulceration [Unknown]
  - Oesophagitis [Unknown]
  - Malaise [Unknown]
  - Diabetes mellitus [Unknown]
  - Sinusitis [Unknown]
  - Nasopharyngitis [Unknown]
  - Dyspnoea [Not Recovered/Not Resolved]
  - Cough [Not Recovered/Not Resolved]
  - Candida infection [Unknown]
